FAERS Safety Report 4527145-X (Version None)
Quarter: 2004Q4

REPORT INFORMATION
  Report Type: 
  Country: None (occurrence: None)
  Receive Date: 20041126
  Receipt Date: 20040817
  Transmission Date: 20050328
  Serious: Yes (Hospitalization)
  Sender: FDA-Public Use
  Company Number: 04P-163-0271125-00

PATIENT
  Age: 28 Year
  Sex: Male

DRUGS (2)
  1. DEPAKOTE ER [Suspect]
     Dosage: 500 MG , 4 IN 1 D, PER ORAL
     Route: 048
     Dates: start: 20000101, end: 20040721
  2. CLOZAPINE [Suspect]
     Dosage: 25 MG, 3 IN 1 D, PER ORAL
     Route: 048
     Dates: start: 20040630, end: 20040730

REACTIONS (4)
  - DRUG INTERACTION [None]
  - DRUG LEVEL INCREASED [None]
  - PANCREATITIS [None]
  - PYREXIA [None]
